APPROVED DRUG PRODUCT: AMBIEN CR
Active Ingredient: ZOLPIDEM TARTRATE
Strength: 12.5MG
Dosage Form/Route: TABLET, EXTENDED RELEASE;ORAL
Application: N021774 | Product #001 | TE Code: AB
Applicant: COSETTE PHARMACEUTICALS INC
Approved: Sep 2, 2005 | RLD: Yes | RS: Yes | Type: RX